FAERS Safety Report 9324783 (Version 1)
Quarter: 2013Q2

REPORT INFORMATION
  Report Type: Spontaneous
  Country: US (occurrence: None)
  Receive Date: 20130529
  Receipt Date: 20130529
  Transmission Date: 20140414
  Serious: Yes (Hospitalization)
  Sender: FDA-Public Use
  Company Number: TPA2013A00958

PATIENT
  Age: 87 Year
  Sex: Female

DRUGS (10)
  1. ADENURIC (FEBUXOSTAT) [Suspect]
     Indication: PRODUCT USED FOR UNKNOWN INDICATION
     Dosage: 80 MG 1-2
     Route: 048
     Dates: start: 20121012, end: 20121018
  2. ALLOPURINOL [Suspect]
     Indication: PRODUCT USED FOR UNKNOWN INDICATION
     Route: 048
     Dates: start: 20120913
  3. BISOPROLOL (BISOPROLOL) [Concomitant]
  4. FUROSEMIDE (FUROSEMIDE) [Concomitant]
  5. ALDACTONE (SPIRONOLACTONE) [Concomitant]
  6. DIGOXIN (DIGOXIN) [Concomitant]
  7. NISIS (VALSARTAN) [Concomitant]
  8. KARDEGIC (ACETYLSALICYLATE LYSINE) [Concomitant]
  9. LEVOTHYROX (LEVOTHYROXINE SODIUM)RACETAMOL) [Concomitant]
  10. DAFALGAN (PARACETAMOL) [Concomitant]

REACTIONS (1)
  - Drug reaction with eosinophilia and systemic symptoms [None]
